FAERS Safety Report 7532476-5 (Version None)
Quarter: 2011Q2

REPORT INFORMATION
  Report Type: 
  Country: None (occurrence: None)
  Receive Date: 20110608
  Receipt Date: 20110526
  Transmission Date: 20111010
  Serious: Yes (Other)
  Sender: FDA-Public Use
  Company Number: PHHY2011AU46421

PATIENT

DRUGS (1)
  1. EXFORGE [Suspect]
     Dosage: 320 MG, UNK

REACTIONS (3)
  - SWELLING [None]
  - RASH [None]
  - SWOLLEN TONGUE [None]
